FAERS Safety Report 22172694 (Version 1)
Quarter: 2023Q2

REPORT INFORMATION
  Report Type: Spontaneous
  Country: US (occurrence: US)
  Receive Date: 20230404
  Receipt Date: 20230404
  Transmission Date: 20230721
  Serious: Yes (Death, Hospitalization, Other)
  Sender: FDA-Public Use
  Company Number: US-009507513-2303USA010348

PATIENT
  Sex: Female

DRUGS (1)
  1. KEYTRUDA [Suspect]
     Active Substance: PEMBROLIZUMAB
     Indication: Non-small cell lung cancer metastatic
     Dosage: 200 MILLIGRAM (MG), EVERY 21 DAYS (Q3W)
     Route: 042
     Dates: start: 20230215, end: 20230215

REACTIONS (19)
  - Death [Fatal]
  - Ill-defined disorder [Unknown]
  - Gastroenteritis viral [Unknown]
  - Gastric infection [Unknown]
  - Unresponsive to stimuli [Not Recovered/Not Resolved]
  - Full blood count decreased [Unknown]
  - Platelet count decreased [Unknown]
  - Drug ineffective [Unknown]
  - Gastrointestinal pain [Unknown]
  - Eating disorder [Unknown]
  - Odynophagia [Unknown]
  - General physical condition abnormal [Unknown]
  - Defaecation disorder [Unknown]
  - Mental disorder [Unknown]
  - Memory impairment [Unknown]
  - Jaundice [Not Recovered/Not Resolved]
  - Muscle spasms [Unknown]
  - Asthenia [Unknown]
  - Back pain [Unknown]

NARRATIVE: CASE EVENT DATE: 20230101
